FAERS Safety Report 20595577 (Version 7)
Quarter: 2022Q2

REPORT INFORMATION
  Report Type: Report from Study
  Country: FR (occurrence: None)
  Receive Date: 20220315
  Receipt Date: 20220623
  Transmission Date: 20220721
  Serious: Yes (Hospitalization)
  Sender: FDA-Public Use
  Company Number: FR-ROCHE-3042137

PATIENT
  Age: 63 Year
  Sex: Female
  Weight: 76 kg

DRUGS (23)
  1. PLACEBO [Suspect]
     Active Substance: UNSPECIFIED INGREDIENT
     Indication: Primary progressive multiple sclerosis
     Dosage: TWO INFUSIONS OF OCRELIZUMAB SEPARATED BY 14 DAYS IN EACH TREATMENT CYCLE OF 24 WEEKS (AS PER PROTOC
     Route: 042
     Dates: start: 20111124, end: 20111124
  2. OCRELIZUMAB [Suspect]
     Active Substance: OCRELIZUMAB
     Indication: Primary progressive multiple sclerosis
     Dosage: TWO INFUSIONS OF OCRELIZUMAB SEPARATED BY 14 DAYS IN EACH TREATMENT CYCLE OF 24 WEEKS (AS PER PROTOC
     Route: 042
     Dates: start: 20151117, end: 20151117
  3. CETIRIZINE [Concomitant]
     Active Substance: CETIRIZINE HYDROCHLORIDE
     Dosage: 08/MAR/2018, 03/SEP/2018, 11/FEB/2019, 25/JUL/2019, 18/JUN/2020, 04/DEC/2020,  02/JUL/2021, 09/DEC/2
     Dates: start: 20170915
  4. CETIRIZINE [Concomitant]
     Active Substance: CETIRIZINE HYDROCHLORIDE
     Dosage: 02/JUL/2021, 04/DEC/2020, 08/MAR/2018, 09/DEC/2021, 11/FEB/2019, 18/JUN/2020, 25/JUL/2019
     Dates: start: 20170915
  5. METHYLPREDNISOLONE [Concomitant]
     Active Substance: METHYLPREDNISOLONE
     Dosage: 08/DEC/2011,11/MAY/2012, 26/SEP/2013, 05/SEP/2014, 28/JUL/2015, 01/DEC/2015, 03/MAY/2016, 02/NOV/201
     Dates: start: 20111124
  6. VESICARE [Concomitant]
     Active Substance: SOLIFENACIN SUCCINATE
     Dates: start: 201505
  7. LERCANIDIPINE HYDROCHLORIDE [Concomitant]
     Active Substance: LERCANIDIPINE HYDROCHLORIDE
     Indication: Hypertension
     Dates: start: 20140502
  8. ZYMA D [Concomitant]
     Dates: start: 20140729
  9. ACETAMINOPHEN\CODEINE PHOSPHATE [Concomitant]
     Active Substance: ACETAMINOPHEN\CODEINE PHOSPHATE
     Indication: Migraine
     Dates: start: 2011
  10. ONGLYZA [Concomitant]
     Active Substance: SAXAGLIPTIN HYDROCHLORIDE
     Indication: Diabetes mellitus
     Dates: start: 20140729
  11. ESBERIVEN (FRANCE) [Concomitant]
     Indication: Peripheral venous disease
     Dates: start: 20121215
  12. DALFAMPRIDINE [Concomitant]
     Active Substance: DALFAMPRIDINE
     Dates: start: 20130715
  13. LANTUS [Concomitant]
     Active Substance: INSULIN GLARGINE
     Indication: Diabetes mellitus
     Dosage: 7 UNITS
     Dates: start: 20160108
  14. LIORESAL [Concomitant]
     Active Substance: BACLOFEN
     Indication: Muscle spasticity
     Dates: start: 2006, end: 20150728
  15. LIORESAL [Concomitant]
     Active Substance: BACLOFEN
     Dates: start: 20181120
  16. LIORESAL [Concomitant]
     Active Substance: BACLOFEN
     Dates: start: 20150729, end: 20181119
  17. POLARAMINE [Concomitant]
     Active Substance: DEXCHLORPHENIRAMINE MALEATE
     Dosage: 08/DEC/2011, 11/MAY/2012, 26/OCT/2012, 09/APR/2013, 08/OCT/2013, 17/MAR/2014, 31/MAR/2014, 05/SEP/20
     Dates: start: 20111124
  18. POLARAMINE [Concomitant]
     Active Substance: DEXCHLORPHENIRAMINE MALEATE
     Dosage: 06/JAN/2020
     Dates: start: 20111124
  19. POLARAMINE [Concomitant]
     Active Substance: DEXCHLORPHENIRAMINE MALEATE
     Dosage: 05/SEP/2014, 09/APR/2013, 17/MAR/2014, 19/SEP/2014, 26/OCT/2012, 31/MAR/2014
     Dates: start: 20111124
  20. PERFALGAN [Concomitant]
     Active Substance: ACETAMINOPHEN
     Dosage: 08/DEC/2011, 11/MAY/2012, 25/MAY/2012, 26/OCT/2012, 09/NOV/2012
     Dates: start: 20111124
  21. ACETAMINOPHEN [Concomitant]
     Active Substance: ACETAMINOPHEN
     Dosage: 08/DEC/2011, 11/MAY/2012, 26/OCT/2012, 09/APR/2013, 08/OCT/2013, 17/MAR/2014, 31/MAR/2014, 05/SEP/20
     Dates: start: 20130409
  22. ACETAMINOPHEN [Concomitant]
     Active Substance: ACETAMINOPHEN
     Dosage: 01/DEC/2015, 19/SEP/2014
     Dates: start: 20130409
  23. IBUPROFEN [Concomitant]
     Active Substance: IBUPROFEN
     Indication: Arthralgia
     Dates: start: 20220527

REACTIONS (1)
  - COVID-19 pneumonia [Recovered/Resolved]

NARRATIVE: CASE EVENT DATE: 20220204
